FAERS Safety Report 14300452 (Version 2)
Quarter: 2018Q1

REPORT INFORMATION
  Report Type: Report from Study
  Country: US (occurrence: US)
  Receive Date: 20171219
  Receipt Date: 20180314
  Transmission Date: 20180509
  Serious: Yes (Death)
  Sender: FDA-Public Use
  Company Number: US-HERON THERAPEUTICS, INC-HRTX-2017-000419

PATIENT
  Sex: Female

DRUGS (1)
  1. SUSTOL [Suspect]
     Active Substance: GRANISETRON
     Indication: PROPHYLAXIS OF NAUSEA AND VOMITING
     Dosage: 10 MG/0.4 ML, SINGLE
     Route: 058
     Dates: start: 20171025, end: 20171025

REACTIONS (1)
  - Disease progression [Fatal]

NARRATIVE: CASE EVENT DATE: 2017
